FAERS Safety Report 15334953 (Version 4)
Quarter: 2018Q4

REPORT INFORMATION
  Report Type: Spontaneous
  Country: AT (occurrence: AT)
  Receive Date: 20180830
  Receipt Date: 20181008
  Transmission Date: 20190204
  Serious: Yes (Hospitalization, Other)
  Sender: FDA-Public Use
  Company Number: AT-PFIZER INC-2018344856

PATIENT
  Age: 70 Year
  Sex: Female
  Weight: 59.5 kg

DRUGS (1)
  1. XALKORI [Suspect]
     Active Substance: CRIZOTINIB
     Indication: NON-SMALL CELL LUNG CANCER
     Dosage: UNK
     Dates: end: 20180824

REACTIONS (4)
  - Abscess [Unknown]
  - Pyelonephritis chronic [Unknown]
  - Pleural effusion [Unknown]
  - Nephritis [Unknown]

NARRATIVE: CASE EVENT DATE: 201808
